FAERS Safety Report 9553130 (Version 1)
Quarter: 2013Q2

REPORT INFORMATION
  Report Type: Spontaneous
  Country: US (occurrence: None)
  Receive Date: 20130606
  Receipt Date: 20130606
  Transmission Date: 20140414
  Serious: Yes (Other)
  Sender: FDA-Public Use
  Company Number: 2013PROUSA02715

PATIENT
  Age: 86 Year
  Sex: Male
  Weight: 72.6 kg

DRUGS (10)
  1. PROVENGE [Suspect]
     Indication: PROSTATE CANCER METASTATIC
     Route: 042
     Dates: start: 20130228, end: 20130228
  2. AVODART (DUTASTERIDE) [Concomitant]
  3. CASODEX (BICALUTAMIDE) [Concomitant]
  4. FLUTAMIDE [Concomitant]
  5. CALCIUM (CALCIUM GLUCONATE) [Concomitant]
  6. PULMICORT (BUDESONIDE) [Concomitant]
  7. TOPROL (METOPROLOL SUCCINATE) [Concomitant]
  8. ISOSORBIDE DINITRATE [Concomitant]
  9. WARFARIN SODIUM [Concomitant]
  10. TIAZAC (DILTIAZEM HYDROCHLORIDE) [Concomitant]

REACTIONS (1)
  - Ageusia [None]
